FAERS Safety Report 25911218 (Version 2)
Quarter: 2025Q4

REPORT INFORMATION
  Report Type: Report from Study
  Country: US (occurrence: US)
  Receive Date: 20251013
  Receipt Date: 20251106
  Transmission Date: 20260117
  Serious: Yes (Other)
  Sender: BIOVITRUM
  Company Number: US-BIOVITRUM-2025-US-013841

PATIENT
  Age: 77 Year
  Sex: Female

DRUGS (2)
  1. KINERET [Suspect]
     Active Substance: ANAKINRA
     Indication: Product used for unknown indication
     Dosage: 100 MG PER 0.67 ML 7S?1X PER WEEK
  2. KINERET [Suspect]
     Active Substance: ANAKINRA
     Dosage: 1X PER WEEK
     Dates: start: 202509

REACTIONS (6)
  - Tuberculosis [Unknown]
  - Condition aggravated [Unknown]
  - Immunosuppression [Not Recovered/Not Resolved]
  - Pain [Unknown]
  - Fungal infection [Unknown]
  - Product dose omission issue [Unknown]
